FAERS Safety Report 7428997-6 (Version None)
Quarter: 2011Q2

REPORT INFORMATION
  Report Type: 
  Country: None (occurrence: None)
  Receive Date: 20110421
  Receipt Date: 20110415
  Transmission Date: 20111010
  Serious: Yes (Hospitalization)
  Sender: FDA-Public Use
  Company Number: US-B.I. PHARMACEUTICALS,INC./RIDGEFIELD-2011-BP-02282BP

PATIENT
  Age: 88 Year
  Sex: Male
  Weight: 73.93 kg

DRUGS (1)
  1. PRADAXA [Suspect]
     Route: 048
     Dates: start: 20101216, end: 20110109

REACTIONS (4)
  - HAEMOGLOBIN DECREASED [None]
  - ANAEMIA [None]
  - HAEMATOCHEZIA [None]
  - GASTROINTESTINAL HAEMORRHAGE [None]
